FAERS Safety Report 12141453 (Version 3)
Quarter: 2016Q2

REPORT INFORMATION
  Report Type: Spontaneous
  Country: JP (occurrence: JP)
  Receive Date: 20160303
  Receipt Date: 20160401
  Transmission Date: 20160815
  Serious: Yes (Hospitalization, Other)
  Sender: FDA-Public Use
  Company Number: JP-GILEAD-2016-0200606

PATIENT
  Age: 69 Year
  Sex: Female
  Weight: 55 kg

DRUGS (3)
  1. ZEFIX [Concomitant]
     Active Substance: LAMIVUDINE
     Route: 048
  2. HEPSERA [Suspect]
     Active Substance: ADEFOVIR DIPIVOXIL
     Dosage: UNK UNK, QOD
     Route: 048
  3. HEPSERA [Suspect]
     Active Substance: ADEFOVIR DIPIVOXIL
     Indication: CHRONIC HEPATITIS B
     Dosage: 10 MG, UNK
     Route: 048
     Dates: start: 200505

REACTIONS (8)
  - Fanconi syndrome acquired [Recovered/Resolved]
  - Hypophosphataemia [Recovered/Resolved]
  - Gait disturbance [Recovered/Resolved]
  - Femur fracture [Recovered/Resolved]
  - Pain in extremity [Recovering/Resolving]
  - Osteomalacia [Recovered/Resolved]
  - Renal tubular disorder [Recovered/Resolved]
  - Bone pain [Unknown]

NARRATIVE: CASE EVENT DATE: 20131219
